FAERS Safety Report 4860545-7 (Version None)
Quarter: 2005Q4

REPORT INFORMATION
  Report Type: 
  Country: None (occurrence: None)
  Receive Date: 20051216
  Receipt Date: 20051130
  Transmission Date: 20060501
  Serious: Yes (Hospitalization)
  Sender: FDA-Public Use
  Company Number: 0205057

PATIENT
  Age: 58 Year
  Sex: Male
  Weight: 117.9352 kg

DRUGS (3)
  1. DEPODUR [Suspect]
     Dosage: 15 MG, EPIDURAL
     Route: 008
     Dates: start: 20051102, end: 20051102
  2. MORPHINE [Concomitant]
  3. OXYGEN (OXYGEN) [Concomitant]

REACTIONS (10)
  - HEART RATE INCREASED [None]
  - LETHARGY [None]
  - LOSS OF CONSCIOUSNESS [None]
  - PAIN [None]
  - PCO2 INCREASED [None]
  - PO2 DECREASED [None]
  - POST PROCEDURAL COMPLICATION [None]
  - RESPIRATORY DEPRESSION [None]
  - RESPIRATORY RATE INCREASED [None]
  - THERAPY NON-RESPONDER [None]
